FAERS Safety Report 4502988-7 (Version None)
Quarter: 2004Q4

REPORT INFORMATION
  Report Type: 
  Country: None (occurrence: None)
  Receive Date: 20041116
  Receipt Date: 20041116
  Transmission Date: 20050328
  Serious: No
  Sender: FDA-Public Use
  Company Number: None

PATIENT
  Age: 66 Year
  Sex: Male

DRUGS (11)
  1. ANGIOMAX [Suspect]
     Indication: CATHETERISATION CARDIAC
     Dosage: 54MG BOLUS   1.75 MG/KG/HR   INTRAVENOU
     Route: 042
     Dates: start: 20040710, end: 20040710
  2. ISOVUE-128 [Suspect]
     Indication: CATHETERISATION CARDIAC
     Dosage: 350ML   ONCE   INTRAVENOU
     Route: 042
     Dates: start: 20040710, end: 20040710
  3. FENTANYL [Concomitant]
  4. MIDAZOLAM HCL [Concomitant]
  5. CLOPIDOGREL BISULFATE [Concomitant]
  6. TYLENOL [Concomitant]
  7. ASPIRIN [Concomitant]
  8. COZAAR [Concomitant]
  9. DIGOXIN [Concomitant]
  10. MULTI-VITAMIN [Concomitant]
  11. B-12 [Concomitant]

REACTIONS (7)
  - AGITATION [None]
  - CONTRAST MEDIA REACTION [None]
  - DYSPNOEA [None]
  - HYPERTENSION [None]
  - LIVEDO RETICULARIS [None]
  - SKIN DISCOLOURATION [None]
  - TREMOR [None]
